FAERS Safety Report 14951200 (Version 1)
Quarter: 2018Q2

REPORT INFORMATION
  Report Type: Spontaneous
  Country: US (occurrence: US)
  Receive Date: 20180530
  Receipt Date: 20180530
  Transmission Date: 20180711
  Serious: No
  Sender: FDA-Public Use
  Company Number: US-MYLANLABS-2018M1026803

PATIENT
  Sex: Male
  Weight: 98 kg

DRUGS (2)
  1. FENTANYL. [Suspect]
     Active Substance: FENTANYL
     Indication: PAIN
     Route: 062
  2. FENTANYL. [Suspect]
     Active Substance: FENTANYL
     Route: 062

REACTIONS (7)
  - Erythema [Unknown]
  - Pruritus [Unknown]
  - Skin operation [Unknown]
  - Drug ineffective [Unknown]
  - Dry skin [Unknown]
  - Skin haemorrhage [Unknown]
  - Skin disorder [Unknown]
